FAERS Safety Report 17536743 (Version 1)
Quarter: 2020Q1

REPORT INFORMATION
  Report Type: Spontaneous
  Country: US (occurrence: US)
  Receive Date: 20200313
  Receipt Date: 20200313
  Transmission Date: 20200409
  Serious: Yes (Hospitalization)
  Sender: FDA-Public Use
  Company Number: US-ROCHE-2563786

PATIENT
  Sex: Male
  Weight: 91.25 kg

DRUGS (4)
  1. RITUXAN [Suspect]
     Active Substance: RITUXIMAB
     Indication: NEUROMYELITIS OPTICA SPECTRUM DISORDER
     Dosage: ONGOING :YES
     Route: 041
     Dates: start: 20191101
  2. QUINAPRIL HYDROCHLORIDE. [Concomitant]
     Active Substance: QUINAPRIL HYDROCHLORIDE
  3. ALUPENT [Concomitant]
     Active Substance: METAPROTERENOL SULFATE
  4. PROTONIX [Concomitant]
     Active Substance: PANTOPRAZOLE SODIUM

REACTIONS (10)
  - Urinary tract infection [Recovered/Resolved]
  - Urosepsis [Recovered/Resolved]
  - Ageusia [Not Recovered/Not Resolved]
  - Off label use [Unknown]
  - Intentional product use issue [Unknown]
  - Asthenia [Not Recovered/Not Resolved]
  - Immunodeficiency [Unknown]
  - Fatigue [Unknown]
  - Rectal haemorrhage [Recovered/Resolved]
  - Weight decreased [Not Recovered/Not Resolved]
